FAERS Safety Report 10068818 (Version 1)
Quarter: 2014Q2

REPORT INFORMATION
  Report Type: Spontaneous
  Country: US (occurrence: US)
  Receive Date: 20140409
  Receipt Date: 20140409
  Transmission Date: 20141212
  Serious: No
  Sender: FDA-Public Use
  Company Number: US-PFIZER INC-2014098628

PATIENT
  Age: 61 Year
  Sex: Female
  Weight: 65.8 kg

DRUGS (2)
  1. CHANTIX [Suspect]
     Indication: SMOKING CESSATION THERAPY
     Dosage: 1 MG, 2X/DAY
     Dates: start: 201311, end: 201404
  2. WELLBUTRIN [Concomitant]
     Indication: DEPRESSION
     Dosage: 50 MG, 2X/DAY

REACTIONS (2)
  - Abnormal dreams [Recovered/Resolved]
  - Weight increased [Unknown]
